FAERS Safety Report 9319504 (Version 2)
Quarter: 2014Q2

REPORT INFORMATION
  Report Type: Spontaneous
  Country: US (occurrence: US)
  Receive Date: 20130530
  Receipt Date: 20140530
  Transmission Date: 20141212
  Serious: No
  Sender: FDA-Public Use
  Company Number: US-GLAXOSMITHKLINE-A0993148A

PATIENT
  Age: 40 Year
  Sex: Female

DRUGS (4)
  1. FLOLAN [Suspect]
     Indication: PULMONARY ARTERIAL HYPERTENSION
     Dosage: 27.7NGKM CONTINUOUS
     Route: 065
     Dates: start: 20101105
  2. LETAIRIS [Concomitant]
  3. ADCIRCA [Concomitant]
  4. WARFARIN [Concomitant]

REACTIONS (4)
  - Catheter site pain [Unknown]
  - Urticaria [Unknown]
  - Pruritus [Unknown]
  - Catheter site inflammation [Unknown]
